FAERS Safety Report 17142562 (Version 2)
Quarter: 2020Q4

REPORT INFORMATION
  Report Type: Spontaneous
  Country: US (occurrence: US)
  Receive Date: 20191211
  Receipt Date: 20201029
  Transmission Date: 20210113
  Serious: Yes (Death, Hospitalization, Other)
  Sender: FDA-Public Use
  Company Number: US-PURDUE PHARMA-USA-2019-0149293

PATIENT
  Sex: Male

DRUGS (3)
  1. PERCOCET                           /00446701/ [Suspect]
     Active Substance: ACETAMINOPHEN\OXYCODONE HYDROCHLORIDE\OXYCODONE TEREPHTHALATE
     Indication: PRODUCT USED FOR UNKNOWN INDICATION
     Dosage: UNK
     Route: 065
  2. OXYCODONE/ ACETAMINOPHEN TABLETS [Suspect]
     Active Substance: ACETAMINOPHEN\OXYCODONE HYDROCHLORIDE
     Indication: PRODUCT USED FOR UNKNOWN INDICATION
     Dosage: UNK
     Route: 048
  3. OXYCONTIN [Suspect]
     Active Substance: OXYCODONE HYDROCHLORIDE
     Indication: NECK PAIN
     Dosage: UNK
     Route: 048

REACTIONS (15)
  - Aggression [Recovered/Resolved]
  - Depression [Unknown]
  - Drug dependence [Recovered/Resolved]
  - Unevaluable event [Recovered/Resolved]
  - Death [Fatal]
  - Neuroendocrine carcinoma [Unknown]
  - Constipation [Recovered/Resolved]
  - Drug ineffective [Recovered/Resolved]
  - Panic attack [Unknown]
  - Delirium [Recovered/Resolved]
  - Sneezing [Recovered/Resolved]
  - Anxiety [Unknown]
  - Gastric cancer [Recovered/Resolved]
  - Intestinal obstruction [Recovered/Resolved]
  - Withdrawal syndrome [Recovered/Resolved]

NARRATIVE: CASE EVENT DATE: 20181208
